FAERS Safety Report 12234021 (Version 4)
Quarter: 2016Q2

REPORT INFORMATION
  Report Type: Spontaneous
  Country: US (occurrence: US)
  Receive Date: 20160404
  Receipt Date: 20160613
  Transmission Date: 20160815
  Serious: Yes (Other)
  Sender: FDA-Public Use
  Company Number: US-PFIZER INC-2016189455

PATIENT
  Age: 49 Year
  Sex: Female

DRUGS (1)
  1. XELJANZ [Suspect]
     Active Substance: TOFACITINIB CITRATE
     Indication: RHEUMATOID ARTHRITIS
     Dosage: 5 MG, 2X/DAY
     Dates: start: 201602, end: 2016

REACTIONS (6)
  - Feeling abnormal [Unknown]
  - Drug ineffective [Unknown]
  - Dry mouth [Not Recovered/Not Resolved]
  - Nasal discomfort [Unknown]
  - Sjogren^s syndrome [Not Recovered/Not Resolved]
  - Condition aggravated [Not Recovered/Not Resolved]

NARRATIVE: CASE EVENT DATE: 2016
